FAERS Safety Report 4673057-0 (Version None)
Quarter: 2005Q2

REPORT INFORMATION
  Report Type: 
  Country: None (occurrence: None)
  Receive Date: 20050523
  Receipt Date: 20001109
  Transmission Date: 20051028
  Serious: Yes (Death, Hospitalization)
  Sender: FDA-Public Use
  Company Number: 2000-00536

PATIENT
  Age: 50 Year
  Sex: Male
  Weight: 71.5 kg

DRUGS (4)
  1. DAUNOXOME [Suspect]
     Indication: KAPOSI'S SARCOMA
     Dosage: INTRAVENOUS
     Route: 042
     Dates: start: 19940907, end: 19941019
  2. DIFLUCAN [Concomitant]
  3. SOLU DECORTIN (PREDNISONE) [Concomitant]
  4. ISOZID (ISONIAZID) [Concomitant]

REACTIONS (2)
  - CYANOSIS [None]
  - DYSPNOEA [None]
